FAERS Safety Report 5271240-7 (Version None)
Quarter: 2007Q1

REPORT INFORMATION
  Report Type: 
  Country: None (occurrence: None)
  Receive Date: 20061214
  Receipt Date: 20060720
  Transmission Date: 20070707
  Serious: Yes (Hospitalization, Other)
  Sender: FDA-Public Use
  Company Number: 2006070128

PATIENT
  Age: 54 Year
  Sex: Female
  Weight: 77.1115 kg

DRUGS (2)
  1. BEXTRA [Suspect]
     Indication: ARTHRITIS
     Dosage: 40 MG (20 MG,2 IN 1 D),ORAL
     Route: 048
     Dates: start: 20021001, end: 20041001
  2. BEXTRA [Suspect]
     Indication: INFLAMMATION
     Dosage: 40 MG (20 MG,2 IN 1 D),ORAL
     Route: 048
     Dates: start: 20021001, end: 20041001

REACTIONS (1)
  - MYOCARDIAL INFARCTION [None]
